FAERS Safety Report 12366083 (Version 1)
Quarter: 2016Q2

REPORT INFORMATION
  Report Type: Spontaneous
  Country: RU (occurrence: RU)
  Receive Date: 20160513
  Receipt Date: 20160513
  Transmission Date: 20160815
  Serious: No
  Sender: FDA-Public Use
  Company Number: RU-009507513-1605RUS005637

PATIENT
  Age: 8 Year
  Sex: Female

DRUGS (1)
  1. ASMANEX [Suspect]
     Active Substance: MOMETASONE FUROATE
     Dosage: UNK
     Route: 048

REACTIONS (3)
  - Incorrect route of drug administration [Unknown]
  - Off label use [Unknown]
  - Cough [Unknown]
